FAERS Safety Report 9538501 (Version 1)
Quarter: 2013Q2

REPORT INFORMATION
  Report Type: Spontaneous
  Country: US (occurrence: None)
  Receive Date: 20130507
  Receipt Date: 20130507
  Transmission Date: 20140414
  Serious: No
  Sender: FDA-Public Use
  Company Number: PHEH2013US002414

PATIENT
  Age: 57 Year
  Sex: Female
  Weight: 72 kg

DRUGS (16)
  1. AFINITOR (RAD) UNKNOWN [Suspect]
     Indication: BREAST CANCER METASTATIC
     Route: 048
  2. AFINITOR (RAD) UNKNOWN [Suspect]
     Indication: METASTASES TO BONE
     Route: 048
  3. AROMASIN [Concomitant]
  4. MELOXICAM [Concomitant]
  5. ZOMETA [Concomitant]
  6. METFORMIN [Concomitant]
  7. AZITHROMYCIN [Concomitant]
  8. ZOFRAN [Concomitant]
  9. VENTOLIN HFA [Concomitant]
  10. PRILOSEC [Concomitant]
  11. PULMICORT [Concomitant]
  12. ZOLADEX [Concomitant]
  13. CALCIUM 500 [Concomitant]
  14. ALLEGRA [Concomitant]
  15. MUCINEX [Concomitant]
  16. PROBIOTICS [Concomitant]

REACTIONS (4)
  - Acne [None]
  - Fatigue [None]
  - Platelet count decreased [None]
  - Pyrexia [None]
